FAERS Safety Report 10894410 (Version 2)
Quarter: 2015Q2

REPORT INFORMATION
  Report Type: Spontaneous
  Country: US (occurrence: US)
  Receive Date: 20150306
  Receipt Date: 20150518
  Transmission Date: 20150821
  Serious: Yes (Other)
  Sender: FDA-Public Use
  Company Number: US-GLAXOSMITHKLINE-US2015GSK028035

PATIENT
  Sex: Female

DRUGS (18)
  1. ROBAXIN [Concomitant]
     Active Substance: METHOCARBAMOL
  2. CLONAZEPAM. [Concomitant]
     Active Substance: CLONAZEPAM
  3. ESTRADIOL. [Concomitant]
     Active Substance: ESTRADIOL
  4. LAMICTAL [Concomitant]
     Active Substance: LAMOTRIGINE
  5. LOVASTATIN. [Concomitant]
     Active Substance: LOVASTATIN
  6. INVOKANA [Concomitant]
     Active Substance: CANAGLIFLOZIN
  7. NORVASC [Concomitant]
     Active Substance: AMLODIPINE BESYLATE
  8. SEROQUEL [Concomitant]
     Active Substance: QUETIAPINE FUMARATE
  9. METFORMIN [Concomitant]
     Active Substance: METFORMIN HYDROCHLORIDE
  10. PROAIR HFA [Concomitant]
     Active Substance: ALBUTEROL SULFATE
  11. ADVAIR HFA [Suspect]
     Active Substance: FLUTICASONE PROPIONATE\SALMETEROL XINAFOATE
     Indication: ASTHMA
     Dosage: 1 PUFF(S), QD
     Route: 055
  12. ADVAIR HFA [Suspect]
     Active Substance: FLUTICASONE PROPIONATE\SALMETEROL XINAFOATE
  13. AMBIEN [Concomitant]
     Active Substance: ZOLPIDEM TARTRATE
  14. FLONASE [Concomitant]
     Active Substance: FLUTICASONE PROPIONATE
  15. CHLORTHALIDONE. [Concomitant]
     Active Substance: CHLORTHALIDONE
  16. METOPROLOL [Concomitant]
     Active Substance: METOPROLOL
  17. LANTUS [Concomitant]
     Active Substance: INSULIN GLARGINE
  18. IBUPROFEN. [Concomitant]
     Active Substance: IBUPROFEN

REACTIONS (3)
  - Blindness unilateral [Not Recovered/Not Resolved]
  - Visual acuity reduced [Not Recovered/Not Resolved]
  - Macular degeneration [Not Recovered/Not Resolved]
